FAERS Safety Report 6804958-2 (Version None)
Quarter: 2010Q2

REPORT INFORMATION
  Report Type: 
  Country: None (occurrence: None)
  Receive Date: 20100628
  Receipt Date: 20070409
  Transmission Date: 20101027
  Serious: Yes (Life-Threatening, Hospitalization, Other)
  Sender: FDA-Public Use
  Company Number: PFIZER INC-2007007743

PATIENT
  Sex: Female
  Weight: 81.2 kg

DRUGS (10)
  1. GEODON [Suspect]
     Indication: SCHIZOAFFECTIVE DISORDER
  2. SEROQUEL [Suspect]
     Indication: SCHIZOAFFECTIVE DISORDER
  3. TRAZODONE HYDROCHLORIDE [Concomitant]
  4. TEGRETOL [Concomitant]
  5. COREG [Concomitant]
  6. LASIX [Concomitant]
  7. KLOR-CON [Concomitant]
  8. ALTACE [Concomitant]
  9. EFFEXOR [Concomitant]
  10. POTASSIUM CHLORIDE [Concomitant]

REACTIONS (5)
  - ELECTROCARDIOGRAM QT PROLONGED [None]
  - LIVER FUNCTION TEST ABNORMAL [None]
  - SYNCOPE [None]
  - TORSADE DE POINTES [None]
  - VENTRICULAR TACHYCARDIA [None]
